FAERS Safety Report 8888314 (Version 2)
Quarter: 2014Q2

REPORT INFORMATION
  Report Type: Spontaneous
  Country: US (occurrence: US)
  Receive Date: 20121106
  Receipt Date: 20131024
  Transmission Date: 20141212
  Serious: Yes (Hospitalization, Other)
  Sender: FDA-Public Use
  Company Number: US-PFIZER INC-2012273002

PATIENT
  Age: 64 Year
  Sex: Female
  Weight: 58.96 kg

DRUGS (3)
  1. DILANTIN [Suspect]
     Indication: EPILEPSY
     Dosage: UNK
     Route: 048
  2. DILANTIN [Suspect]
     Dosage: 300 MG (3 CAPSULES OF 100MG), DAILY
     Route: 048
  3. DILANTIN [Suspect]
     Dosage: UNK
     Route: 048
     Dates: end: 201210

REACTIONS (5)
  - Convulsion [Unknown]
  - Overdose [Unknown]
  - Thinking abnormal [Unknown]
  - Disturbance in attention [Unknown]
  - Drug intolerance [Unknown]
